FAERS Safety Report 4323600-6 (Version None)
Quarter: 2004Q1

REPORT INFORMATION
  Report Type: 
  Country: None (occurrence: None)
  Receive Date: 20040323
  Receipt Date: 20040216
  Transmission Date: 20041129
  Serious: No
  Sender: FDA-Public Use
  Company Number: US_0402100586

PATIENT
  Age: 63 Year
  Sex: Male
  Weight: 89 kg

DRUGS (5)
  1. CIALIS [Suspect]
     Indication: ERECTILE DYSFUNCTION
     Dosage: 20 MG
  2. UNKNOWN BLOOD PRESSURE MEDICATION [Concomitant]
  3. LIPITOR [Concomitant]
  4. UNKNOWN ALLERGY PILL [Concomitant]
  5. NIACIN [Concomitant]

REACTIONS (2)
  - HEADACHE [None]
  - THERAPEUTIC RESPONSE DECREASED [None]
